FAERS Safety Report 4664240-9 (Version None)
Quarter: 2005Q2

REPORT INFORMATION
  Report Type: 
  Country: None (occurrence: None)
  Receive Date: 20050516
  Receipt Date: 20050516
  Transmission Date: 20051028
  Serious: Yes (Hospitalization)
  Sender: FDA-Public Use
  Company Number: None

PATIENT
  Age: 50 Year
  Sex: Female
  Weight: 65.318 kg

DRUGS (12)
  1. PACLITAXEL [Suspect]
     Indication: OVARIAN CANCER
     Dosage: 175 MG/M2 IV Q 3 WK
     Route: 042
     Dates: start: 20041123
  2. PACLITAXEL [Suspect]
     Indication: OVARIAN CANCER
     Dosage: 175 MG/M2 IV Q 3 WK
     Route: 042
     Dates: start: 20041215
  3. PACLITAXEL [Suspect]
     Indication: OVARIAN CANCER
     Dosage: 175 MG/M2 IV Q 3 WK
     Route: 042
     Dates: start: 20050105
  4. PACLITAXEL [Suspect]
     Indication: OVARIAN CANCER
     Dosage: 175 MG/M2 IV Q 3 WK
     Route: 042
     Dates: start: 20050201
  5. PACLITAXEL [Suspect]
     Indication: OVARIAN CANCER
     Dosage: 175 MG/M2 IV Q 3 WK
     Route: 042
     Dates: start: 20050222
  6. PACLITAXEL [Suspect]
     Indication: OVARIAN CANCER
     Dosage: 175 MG/M2 IV Q 3 WK
     Route: 042
     Dates: start: 20050323
  7. CARBOPLATIN [Suspect]
     Indication: OVARIAN CANCER
     Dosage: AUC 6 IV Q 3 WKS
     Route: 042
     Dates: start: 20041123
  8. CARBOPLATIN [Suspect]
     Indication: OVARIAN CANCER
     Dosage: AUC 6 IV Q 3 WKS
     Route: 042
     Dates: start: 20041215
  9. CARBOPLATIN [Suspect]
     Indication: OVARIAN CANCER
     Dosage: AUC 6 IV Q 3 WKS
     Route: 042
     Dates: start: 20050105
  10. CARBOPLATIN [Suspect]
     Indication: OVARIAN CANCER
     Dosage: AUC 6 IV Q 3 WKS
     Route: 042
     Dates: start: 20050201
  11. CARBOPLATIN [Suspect]
     Indication: OVARIAN CANCER
     Dosage: AUC 6 IV Q 3 WKS
     Route: 042
     Dates: start: 20050222
  12. CARBOPLATIN [Suspect]
     Indication: OVARIAN CANCER
     Dosage: AUC 6 IV Q 3 WKS
     Route: 042
     Dates: start: 20050323

REACTIONS (2)
  - BODY TEMPERATURE INCREASED [None]
  - URINARY TRACT INFECTION [None]
